FAERS Safety Report 12314004 (Version 1)
Quarter: 2016Q2

REPORT INFORMATION
  Report Type: Spontaneous
  Country: US (occurrence: None)
  Receive Date: 20160427
  Receipt Date: 20160427
  Transmission Date: 20160815
  Serious: No
  Sender: FDA-Public Use
  Company Number: None

PATIENT
  Age: 69 Year
  Sex: Male

DRUGS (2)
  1. INLYTA [Suspect]
     Active Substance: AXITINIB
     Route: 048
     Dates: start: 20150821
  2. INLYTA [Suspect]
     Active Substance: AXITINIB
     Route: 048
     Dates: start: 20150821

REACTIONS (6)
  - Contusion [None]
  - Decreased appetite [None]
  - Diarrhoea [None]
  - Abdominal pain [None]
  - Weight decreased [None]
  - Haemorrhage [None]

NARRATIVE: CASE EVENT DATE: 20160425
